FAERS Safety Report 10097066 (Version 2)
Quarter: 2014Q2

REPORT INFORMATION
  Report Type: Spontaneous
  Country: IT (occurrence: IT)
  Receive Date: 20140422
  Receipt Date: 20140507
  Transmission Date: 20141212
  Serious: Yes (Hospitalization)
  Sender: FDA-Public Use
  Company Number: IT-BRISTOL-MYERS SQUIBB COMPANY-20627022

PATIENT
  Age: 62 Year
  Sex: Female
  Weight: 73 kg

DRUGS (7)
  1. ORENCIA FOR INJ [Suspect]
     Indication: RHEUMATOID ARTHRITIS
     Route: 042
     Dates: start: 20110501, end: 20140121
  2. SIMVASTATIN [Concomitant]
     Route: 048
  3. MEDROL [Concomitant]
     Route: 048
  4. LANSOX [Concomitant]
     Route: 048
  5. ARAVA [Concomitant]
     Route: 048
  6. RAMIPRIL [Concomitant]
     Route: 048
  7. LYRICA [Concomitant]
     Route: 048

REACTIONS (2)
  - Pulmonary embolism [Recovering/Resolving]
  - Pulmonary infarction [Recovering/Resolving]
